FAERS Safety Report 25240518 (Version 2)
Quarter: 2025Q2

REPORT INFORMATION
  Report Type: Report from Study
  Country: CA (occurrence: CA)
  Receive Date: 20250425
  Receipt Date: 20250505
  Transmission Date: 20250716
  Serious: Yes (Other)
  Sender: TAKEDA
  Company Number: CA-TAKEDA-2024TUS021604

PATIENT
  Sex: Male

DRUGS (17)
  1. VEDOLIZUMAB [Suspect]
     Active Substance: VEDOLIZUMAB
     Indication: Colitis ulcerative
  2. VEDOLIZUMAB [Suspect]
     Active Substance: VEDOLIZUMAB
  3. VEDOLIZUMAB [Suspect]
     Active Substance: VEDOLIZUMAB
  4. VEDOLIZUMAB [Suspect]
     Active Substance: VEDOLIZUMAB
  5. PREGABALIN [Concomitant]
     Active Substance: PREGABALIN
  6. PERINDOPRIL [Concomitant]
     Active Substance: PERINDOPRIL
  7. INDAPAMIDE [Concomitant]
     Active Substance: INDAPAMIDE
  8. PANTOPRAZOLE SODIUM [Concomitant]
     Active Substance: PANTOPRAZOLE SODIUM
  9. CYCLOBENZAPRINE [Concomitant]
     Active Substance: CYCLOBENZAPRINE
  10. AMLODIPINE [Concomitant]
     Active Substance: AMLODIPINE BESYLATE
  11. VENLAFAXINE [Concomitant]
     Active Substance: VENLAFAXINE HYDROCHLORIDE
  12. VENLAFAXINE [Concomitant]
     Active Substance: VENLAFAXINE HYDROCHLORIDE
  13. TRAZODONE [Concomitant]
     Active Substance: TRAZODONE HYDROCHLORIDE
  14. WELLBUTRIN [Concomitant]
     Active Substance: BUPROPION HYDROCHLORIDE
  15. LAMOTRIGINE [Concomitant]
     Active Substance: LAMOTRIGINE
  16. MESALAMINE [Concomitant]
     Active Substance: MESALAMINE
  17. PREDNISONE [Concomitant]
     Active Substance: PREDNISONE

REACTIONS (9)
  - Colitis ulcerative [Recovering/Resolving]
  - Mucous stools [Not Recovered/Not Resolved]
  - Abdominal distension [Not Recovered/Not Resolved]
  - Flatulence [Not Recovered/Not Resolved]
  - Sinus congestion [Unknown]
  - COVID-19 [Unknown]
  - Dyspnoea [Unknown]
  - Constipation [Unknown]
  - Back pain [Not Recovered/Not Resolved]
